FAERS Safety Report 16085740 (Version 3)
Quarter: 2019Q1

REPORT INFORMATION
  Report Type: Report from Study
  Country: RU (occurrence: RU)
  Receive Date: 20190318
  Receipt Date: 20190328
  Transmission Date: 20190418
  Serious: Yes (Death, Other)
  Sender: FDA-Public Use
  Company Number: RU-PFIZER INC-2018195826

PATIENT
  Age: 30 Year
  Sex: Male
  Weight: 72 kg

DRUGS (5)
  1. INOTUZUMAB OZOGAMICIN [Suspect]
     Active Substance: INOTUZUMAB OZOGAMICIN
     Dosage: 0.5 MG/M2, WEEKLY
     Route: 042
     Dates: start: 20180503
  2. ICLUSIG [Concomitant]
     Active Substance: PONATINIB
     Indication: ACUTE LYMPHOCYTIC LEUKAEMIA
     Dosage: 45 MG, 1X/DAY
     Route: 048
  3. FLUCONAZOLE. [Concomitant]
     Active Substance: FLUCONAZOLE
  4. INOTUZUMAB OZOGAMICIN [Suspect]
     Active Substance: INOTUZUMAB OZOGAMICIN
     Indication: ACUTE LYMPHOCYTIC LEUKAEMIA
     Dosage: 0.8 MG/M2, WEEKLY
     Route: 042
     Dates: start: 20180425
  5. INOTUZUMAB OZOGAMICIN [Suspect]
     Active Substance: INOTUZUMAB OZOGAMICIN
     Dosage: UNK
     Route: 042
     Dates: end: 20180718

REACTIONS (9)
  - Aspartate aminotransferase increased [Recovered/Resolved]
  - Hepatomegaly [Unknown]
  - Death [Fatal]
  - Alanine aminotransferase increased [Recovered/Resolved]
  - Weight increased [Unknown]
  - Blood bilirubin increased [Recovered/Resolved]
  - Thrombocytopenia [Recovering/Resolving]
  - Ascites [Unknown]
  - Pneumonia [Unknown]

NARRATIVE: CASE EVENT DATE: 20180510
